FAERS Safety Report 9012709 (Version 1)
Quarter: 2013Q1

REPORT INFORMATION
  Report Type: Spontaneous
  Country: US (occurrence: US)
  Receive Date: 20130114
  Receipt Date: 20130114
  Transmission Date: 20140127
  Serious: Yes (Death)
  Sender: FDA-Public Use
  Company Number: US-ROXANE LABORATORIES, INC.-2013-RO-00047RO

PATIENT
  Age: 26 Year
  Sex: Female

DRUGS (2)
  1. METHADONE [Suspect]
  2. KEPPRA [Suspect]

REACTIONS (1)
  - Convulsion [Fatal]
